FAERS Safety Report 10913923 (Version 1)
Quarter: 2015Q1

REPORT INFORMATION
  Report Type: Spontaneous
  Country: AU (occurrence: None)
  Receive Date: 20150310
  Receipt Date: 20150310
  Transmission Date: 20150721
  Serious: No
  Sender: FDA-Public Use
  Company Number: AU-2015-0714

PATIENT
  Age: 69 Year
  Sex: Male

DRUGS (2)
  1. VINORELBINE INN [Suspect]
     Active Substance: VINORELBINE TARTRATE
     Indication: SQUAMOUS CELL CARCINOMA
     Dosage: ON DAY 01, 08, 22, AND 29
     Route: 048
  2. CISPLATIN. [Suspect]
     Active Substance: CISPLATIN
     Indication: SQUAMOUS CELL CARCINOMA
     Dosage: ON DAY 01, 08, 22 AND 29
     Route: 042

REACTIONS (1)
  - Pleural effusion [None]
